FAERS Safety Report 10089495 (Version 1)
Quarter: 2014Q2

REPORT INFORMATION
  Report Type: Spontaneous
  Country: ES (occurrence: None)
  Receive Date: 20140417
  Receipt Date: 20140417
  Transmission Date: 20141212
  Serious: Yes (Other)
  Sender: FDA-Public Use
  Company Number: SYM-2014-19740

PATIENT
  Age: 71 Year
  Sex: Female

DRUGS (1)
  1. IMIQUIMOD [Suspect]
     Indication: BASAL CELL CARCINOMA

REACTIONS (2)
  - Application site erythema [None]
  - Keloid scar [None]
